FAERS Safety Report 8585315-8 (Version None)
Quarter: 2012Q2

REPORT INFORMATION
  Report Type: 
  Country: None (occurrence: None)
  Receive Date: 20120423
  Receipt Date: 20100420
  Transmission Date: 20120825
  Serious: Yes (Hospitalization, Other)
  Sender: FDA-Public Use
  Company Number: PHEH2010US01398

PATIENT
  Age: 85 Year
  Sex: Female
  Weight: 59 kg

DRUGS (7)
  1. METOPROLOL ^ALIUD PHARMA^ (METOPROLOL TARTRATE) [Concomitant]
  2. LEVOXYL [Concomitant]
  3. MULTIVITAMIN ^LAPPE^ (VITAMINS NOS) [Concomitant]
  4. EXJADE (*CDP 72670*) UNKNOWN, 500MG [Suspect]
     Indication: BONE MARROW FAILURE
     Dosage: 1000 MG, QD, ORAL
     Route: 048
     Dates: start: 20091118
  5. EXJADE (*CDP 72670*) UNKNOWN, 500MG [Suspect]
     Indication: MYELODYSPLASTIC SYNDROME
     Dosage: 1000 MG, QD, ORAL
     Route: 048
     Dates: start: 20091118
  6. EXJADE (*CDP 72670*) UNKNOWN, 500MG [Suspect]
     Indication: LYMPHATIC DISORDER
     Dosage: 1000 MG, QD, ORAL
     Route: 048
     Dates: start: 20091118
  7. ULTRAM [Concomitant]

REACTIONS (14)
  - DYSPEPSIA [None]
  - GASTRIC ULCER [None]
  - DEHYDRATION [None]
  - DIZZINESS [None]
  - NEUTROPENIA [None]
  - THROAT IRRITATION [None]
  - NAUSEA [None]
  - FAECES DISCOLOURED [None]
  - HAEMATOCRIT DECREASED [None]
  - GASTROINTESTINAL HAEMORRHAGE [None]
  - MELAENA [None]
  - HYPOTENSION [None]
  - ULCER HAEMORRHAGE [None]
  - HAEMOGLOBIN DECREASED [None]
